FAERS Safety Report 17164535 (Version 1)
Quarter: 2019Q4

REPORT INFORMATION
  Report Type: Spontaneous
  Country: US (occurrence: US)
  Receive Date: 20191217
  Receipt Date: 20191217
  Transmission Date: 20200122
  Serious: Yes (Hospitalization)
  Sender: FDA-Public Use
  Company Number: US-MIKART, LLC-2077895

PATIENT
  Age: 43 Year
  Sex: Female

DRUGS (2)
  1. LIDOCAINE PATCHES [Concomitant]
     Active Substance: LIDOCAINE
     Route: 062
  2. CHLORZOXAZONE. [Suspect]
     Active Substance: CHLORZOXAZONE
     Indication: PAIN
     Route: 048
     Dates: start: 20191012, end: 20191028

REACTIONS (5)
  - Liver function test abnormal [Unknown]
  - Liver function test increased [Unknown]
  - Pyrexia [Recovered/Resolved]
  - Chills [Recovered/Resolved]
  - Fatigue [Recovered/Resolved]

NARRATIVE: CASE EVENT DATE: 20191028
